FAERS Safety Report 8545454-4 (Version None)
Quarter: 2012Q3

REPORT INFORMATION
  Report Type: 
  Country: None (occurrence: None)
  Receive Date: 20120727
  Receipt Date: 20120306
  Transmission Date: 20120928
  Serious: No
  Sender: FDA-Public Use
  Company Number: US-ASTRAZENECA-2011SE67523

PATIENT
  Age: 48 Year
  Sex: Female
  Weight: 85.7 kg

DRUGS (5)
  1. SEROQUEL [Suspect]
     Route: 048
  2. SEROQUEL [Suspect]
     Route: 048
  3. SEROQUEL [Suspect]
     Route: 048
  4. XANAX [Suspect]
  5. SEROQUEL [Suspect]
     Indication: SLEEP DISORDER
     Route: 048

REACTIONS (5)
  - CRYING [None]
  - DRUG EFFECT DECREASED [None]
  - DEPRESSION [None]
  - INSOMNIA [None]
  - DRUG DOSE OMISSION [None]
